FAERS Safety Report 18987535 (Version 3)
Quarter: 2021Q3

REPORT INFORMATION
  Report Type: Spontaneous
  Country: US (occurrence: US)
  Receive Date: 20210309
  Receipt Date: 20210816
  Transmission Date: 20211014
  Serious: No
  Sender: FDA-Public Use
  Company Number: US-PFIZER INC-2021227536

PATIENT
  Age: 61 Year
  Sex: Female
  Weight: 79.37 kg

DRUGS (10)
  1. IBRANCE [Suspect]
     Active Substance: PALBOCICLIB
     Dosage: 125 MG, CYCLIC (1 TAB 1 DAILY FOR 21 DAYS, THEN 7 DAYS OFF EVERY 28 DAY CYCLE)
     Dates: start: 20210218
  2. AMLODIPINE BESYLATE. [Concomitant]
     Active Substance: AMLODIPINE BESYLATE
     Dosage: 10 MG
  3. VITAMIN D3 [Concomitant]
     Active Substance: CHOLECALCIFEROL
     Dosage: 10(400)/ML DROPS
  4. PROZAC [Concomitant]
     Active Substance: FLUOXETINE HYDROCHLORIDE
     Dosage: 10 MG
  5. IBRANCE [Suspect]
     Active Substance: PALBOCICLIB
     Indication: BREAST CANCER FEMALE
     Dosage: 125 MG, CYCLIC (1 TAB 1 DAILY FOR 21 DAYS, THEN 7 DAYS OFF EVERY 28 DAY CYCLE)
     Route: 048
     Dates: start: 202007
  6. IBRANCE [Suspect]
     Active Substance: PALBOCICLIB
     Dosage: 125MG, CYCLIC (ONCE A DAY FOR 21 DAYS, THEN 7 DAYS OFF)
     Route: 048
     Dates: start: 20210427
  7. ASPIRIN [ACETYLSALICYLIC ACID] [Concomitant]
     Active Substance: ASPIRIN
     Dosage: 100 %
  8. FASLODEX [Concomitant]
     Active Substance: FULVESTRANT
     Dosage: 250 MG/ML SYRINGE
  9. VALSARTAN. [Concomitant]
     Active Substance: VALSARTAN
     Dosage: 160 MG
  10. METOPROLOL SUCCINATE. [Concomitant]
     Active Substance: METOPROLOL SUCCINATE
     Dosage: UNK

REACTIONS (3)
  - Nausea [Unknown]
  - Stomatitis [Unknown]
  - Vomiting [Unknown]
